FAERS Safety Report 4915500-5 (Version None)
Quarter: 2006Q1

REPORT INFORMATION
  Report Type: 
  Country: None (occurrence: None)
  Receive Date: 20060217
  Receipt Date: 20060207
  Transmission Date: 20060701
  Serious: Yes (Death, Hospitalization, Other)
  Sender: FDA-Public Use
  Company Number: US-MERCK-0602USA02364

PATIENT
  Age: 71 Year
  Sex: Female
  Weight: 66 kg

DRUGS (13)
  1. TRENTAL [Concomitant]
     Route: 065
  2. DIGOXIN [Concomitant]
     Route: 065
  3. ACTOS [Concomitant]
     Indication: DIABETES MELLITUS
     Route: 065
     Dates: start: 20020214, end: 20020418
  4. CIPRO [Concomitant]
     Route: 065
  5. VIOXX [Suspect]
     Indication: PAIN IN EXTREMITY
     Route: 048
     Dates: start: 19990101, end: 20021001
  6. ROCEPHIN [Concomitant]
     Route: 065
  7. [THERAPY UNSPECIFIED] [Concomitant]
     Route: 065
  8. [THERAPY UNSPECIFIED] [Concomitant]
     Route: 065
  9. HUMULIN [Concomitant]
     Route: 065
  10. VIOXX [Suspect]
     Route: 048
     Dates: start: 19990101, end: 20021001
  11. VIOXX [Suspect]
     Route: 048
     Dates: start: 19990101, end: 20021001
  12. GLUCOPHAGE [Concomitant]
     Route: 065
  13. ELAVIL [Concomitant]
     Route: 048

REACTIONS (10)
  - BLOOD CHOLESTEROL INCREASED [None]
  - CARDIAC DISORDER [None]
  - CARDIOMYOPATHY [None]
  - CORONARY ARTERY DISEASE [None]
  - DEATH [None]
  - GASTRITIS [None]
  - HYPERTENSION [None]
  - HYPERTRIGLYCERIDAEMIA [None]
  - MYOCARDIAL INFARCTION [None]
  - PRESCRIBED OVERDOSE [None]
